FAERS Safety Report 25755381 (Version 1)
Quarter: 2025Q3

REPORT INFORMATION
  Report Type: Spontaneous
  Country: CN (occurrence: CN)
  Receive Date: 20250903
  Receipt Date: 20250903
  Transmission Date: 20251021
  Serious: Yes (Life-Threatening, Other)
  Sender: BAYER HEALTHCARE PHARMACEUTICALS INC.
  Company Number: CN-BAYER-2025A116560

PATIENT
  Age: 33 Year
  Sex: Male
  Weight: 75 kg

DRUGS (3)
  1. ULTRAVIST [Suspect]
     Active Substance: IOPROMIDE
     Indication: Angiocardiogram
     Route: 042
     Dates: start: 20250825, end: 20250825
  2. ULTRAVIST [Suspect]
     Active Substance: IOPROMIDE
     Indication: Chest discomfort
  3. ULTRAVIST [Suspect]
     Active Substance: IOPROMIDE
     Indication: Sinus bradycardia

REACTIONS (9)
  - Anaphylactic shock [Recovering/Resolving]
  - Blood pressure decreased [Recovered/Resolved]
  - Oxygen saturation decreased [Recovered/Resolved]
  - Erythema [Recovering/Resolving]
  - Pruritus [Recovering/Resolving]
  - Hypoaesthesia oral [Recovering/Resolving]
  - Conjunctival hyperaemia [Recovering/Resolving]
  - Heart rate increased [Recovered/Resolved]
  - Vision blurred [Recovering/Resolving]

NARRATIVE: CASE EVENT DATE: 20250825
